FAERS Safety Report 20003210 (Version 5)
Quarter: 2022Q1

REPORT INFORMATION
  Report Type: Report from Study
  Country: ES (occurrence: ES)
  Receive Date: 20211027
  Receipt Date: 20220214
  Transmission Date: 20220423
  Serious: Yes (Hospitalization, Other)
  Sender: FDA-Public Use
  Company Number: ES-ABBVIE-21P-144-4128543-00

PATIENT
  Age: 80 Year
  Sex: Male
  Weight: 73 kg

DRUGS (41)
  1. UPADACITINIB [Suspect]
     Active Substance: UPADACITINIB
     Indication: Rheumatoid arthritis
     Route: 048
     Dates: start: 20170904, end: 20180921
  2. UPADACITINIB [Suspect]
     Active Substance: UPADACITINIB
     Indication: Rheumatoid arthritis
     Route: 048
     Dates: start: 20180922, end: 20200830
  3. UPADACITINIB [Suspect]
     Active Substance: UPADACITINIB
     Route: 048
     Dates: start: 20200831, end: 20211020
  4. LORAZEPAM [Concomitant]
     Active Substance: LORAZEPAM
     Indication: Anxiety
     Route: 048
     Dates: start: 20140521
  5. TAMSULOSIN HYDROCHLORIDE [Concomitant]
     Active Substance: TAMSULOSIN HYDROCHLORIDE
     Indication: Benign prostatic hyperplasia
     Route: 048
     Dates: start: 20110401
  6. HERBALS\SAW PALMETTO [Concomitant]
     Active Substance: HERBALS\SAW PALMETTO
     Indication: Benign prostatic hyperplasia
     Route: 048
     Dates: start: 20131113, end: 20180402
  7. HERBALS\SAW PALMETTO [Concomitant]
     Active Substance: HERBALS\SAW PALMETTO
     Route: 048
     Dates: start: 20180409
  8. METFORMIN\SITAGLIPTIN [Concomitant]
     Active Substance: METFORMIN\SITAGLIPTIN
     Indication: Diabetes mellitus
     Route: 048
     Dates: start: 20121123, end: 20180318
  9. METFORMIN\SITAGLIPTIN [Concomitant]
     Active Substance: METFORMIN\SITAGLIPTIN
     Route: 048
     Dates: start: 20180320, end: 20180403
  10. METFORMIN\SITAGLIPTIN [Concomitant]
     Active Substance: METFORMIN\SITAGLIPTIN
     Route: 048
     Dates: start: 20180409, end: 20211123
  11. METFORMIN\SITAGLIPTIN [Concomitant]
     Active Substance: METFORMIN\SITAGLIPTIN
     Route: 048
     Dates: start: 20211124
  12. CALCIUM CARBONATE\CHOLECALCIFEROL [Concomitant]
     Active Substance: CALCIUM CARBONATE\CHOLECALCIFEROL
     Indication: Osteoporosis prophylaxis
     Route: 048
     Dates: start: 20170303, end: 20180318
  13. CALCIUM CARBONATE\CHOLECALCIFEROL [Concomitant]
     Active Substance: CALCIUM CARBONATE\CHOLECALCIFEROL
     Route: 048
     Dates: start: 20180320, end: 20180402
  14. CALCIUM CARBONATE\CHOLECALCIFEROL [Concomitant]
     Active Substance: CALCIUM CARBONATE\CHOLECALCIFEROL
     Route: 048
     Dates: start: 20180409, end: 20211122
  15. CALCIUM CARBONATE\CHOLECALCIFEROL [Concomitant]
     Active Substance: CALCIUM CARBONATE\CHOLECALCIFEROL
     Route: 048
     Dates: start: 20211126
  16. LANSOPRAZOLE [Concomitant]
     Active Substance: LANSOPRAZOLE
     Indication: Prophylaxis
     Route: 048
     Dates: start: 20131113, end: 20180318
  17. LANSOPRAZOLE [Concomitant]
     Active Substance: LANSOPRAZOLE
     Route: 048
     Dates: start: 20180409, end: 20181205
  18. LANSOPRAZOLE [Concomitant]
     Active Substance: LANSOPRAZOLE
     Route: 048
     Dates: start: 20181212, end: 20211122
  19. LANSOPRAZOLE [Concomitant]
     Active Substance: LANSOPRAZOLE
     Route: 048
     Dates: start: 20211126
  20. AERIUS [Concomitant]
     Indication: Rhinitis
     Route: 048
     Dates: start: 20150204, end: 20180402
  21. AERIUS [Concomitant]
     Route: 048
     Dates: start: 20180409, end: 20181205
  22. AERIUS [Concomitant]
     Route: 048
     Dates: start: 20181212, end: 20211121
  23. AERIUS [Concomitant]
     Route: 048
     Dates: start: 20211122, end: 20211126
  24. AERIUS [Concomitant]
     Route: 048
     Dates: start: 20211126
  25. HIDRATHEA [Concomitant]
     Indication: Dry eye
     Route: 047
     Dates: start: 20120127, end: 20180318
  26. HIDRATHEA [Concomitant]
     Indication: Cataract
     Route: 047
     Dates: start: 20180320, end: 20180402
  27. HIDRATHEA [Concomitant]
     Route: 047
     Dates: start: 20180409, end: 20181205
  28. HIDRATHEA [Concomitant]
     Route: 047
     Dates: start: 20181212, end: 20211122
  29. ASPIRIN [Concomitant]
     Active Substance: ASPIRIN
     Indication: Transient ischaemic attack
     Route: 048
     Dates: start: 20191127
  30. PITAVASTATIN [Concomitant]
     Active Substance: PITAVASTATIN
     Indication: Transient ischaemic attack
     Route: 048
     Dates: start: 20191128, end: 20211122
  31. PITAVASTATIN [Concomitant]
     Active Substance: PITAVASTATIN
     Route: 048
     Dates: start: 20211126
  32. ENALAPRIL [Concomitant]
     Active Substance: ENALAPRIL
     Indication: Hypertension
     Route: 048
     Dates: start: 20191128, end: 20211122
  33. ENALAPRIL [Concomitant]
     Active Substance: ENALAPRIL
     Route: 048
     Dates: start: 20211126
  34. FOLIC ACID [Concomitant]
     Active Substance: FOLIC ACID
     Indication: Transient ischaemic attack
     Route: 048
     Dates: start: 20170905, end: 20181022
  35. FOLIC ACID [Concomitant]
     Active Substance: FOLIC ACID
     Route: 048
     Dates: start: 20191128
  36. PREDNISONE [Concomitant]
     Active Substance: PREDNISONE
     Indication: Rheumatoid arthritis
     Route: 048
     Dates: start: 20161216, end: 20170302
  37. PREDNISONE [Concomitant]
     Active Substance: PREDNISONE
     Route: 048
     Dates: start: 20170511, end: 20170517
  38. PREDNISONE [Concomitant]
     Active Substance: PREDNISONE
     Route: 048
     Dates: start: 20170518, end: 20170531
  39. PREDNISONE [Concomitant]
     Active Substance: PREDNISONE
     Route: 048
     Dates: start: 20170601, end: 20180305
  40. PREDNISONE [Concomitant]
     Active Substance: PREDNISONE
     Route: 048
     Dates: start: 20170303, end: 20170510
  41. PREDNISONE [Concomitant]
     Active Substance: PREDNISONE
     Route: 048
     Dates: start: 20210111

REACTIONS (1)
  - Squamous cell carcinoma of the tongue [Not Recovered/Not Resolved]

NARRATIVE: CASE EVENT DATE: 20211014
